FAERS Safety Report 23818447 (Version 1)
Quarter: 2024Q2

REPORT INFORMATION
  Report Type: Spontaneous
  Country: US (occurrence: US)
  Receive Date: 20240506
  Receipt Date: 20240506
  Transmission Date: 20240715
  Serious: No
  Sender: FDA-Public Use
  Company Number: US-AUROBINDO-AUR-APL-2023-074595

PATIENT
  Sex: Female
  Weight: 49.8 kg

DRUGS (1)
  1. DEXTROMETHORPHAN HYDROBROMIDE\GUAIFENESIN [Suspect]
     Active Substance: DEXTROMETHORPHAN HYDROBROMIDE\GUAIFENESIN
     Indication: Nasopharyngitis
     Dosage: 1 DOSAGE FORM, TWO TIMES A DAY (EVERY 12 HOURS)
     Route: 065
     Dates: start: 20231012, end: 20231108

REACTIONS (1)
  - Mydriasis [Not Recovered/Not Resolved]
